FAERS Safety Report 6160458-7 (Version None)
Quarter: 2009Q2

REPORT INFORMATION
  Report Type: 
  Country: None (occurrence: None)
  Receive Date: 20090416
  Receipt Date: 20090403
  Transmission Date: 20091009
  Serious: Yes (Death, Hospitalization)
  Sender: FDA-Public Use
  Company Number: 233580K09USA

PATIENT
  Age: 57 Year
  Sex: Female
  Weight: 48 kg

DRUGS (1)
  1. REBIF [Suspect]
     Indication: MULTIPLE SCLEROSIS
     Dosage: 44 MCG, 3 IN 1 WEEKS, SUBCUTANEOUS
     Route: 058

REACTIONS (8)
  - BEDRIDDEN [None]
  - BONE NEOPLASM MALIGNANT [None]
  - CEREBROVASCULAR ACCIDENT [None]
  - DECUBITUS ULCER [None]
  - INFECTION SUSCEPTIBILITY INCREASED [None]
  - PNEUMONIA [None]
  - PROGRESSIVE MULTIPLE SCLEROSIS [None]
  - VIRAL INFECTION [None]
